FAERS Safety Report 20456265 (Version 1)
Quarter: 2022Q1

REPORT INFORMATION
  Report Type: Other
  Country: None (occurrence: US)
  Receive Date: 20220210
  Receipt Date: 20220210
  Transmission Date: 20220424
  Serious: Yes (Hospitalization, Other)
  Sender: FDA-Public Use
  Company Number: US-Nova Laboratories Limited-2125764

PATIENT
  Age: 16 Year
  Sex: Male

DRUGS (8)
  1. PURIXAN [Suspect]
     Active Substance: MERCAPTOPURINE
     Indication: Acute lymphocytic leukaemia
  2. METHOTREXATE [Suspect]
     Active Substance: METHOTREXATE
     Route: 037
  3. MERCAPTOPURINE [Suspect]
     Active Substance: MERCAPTOPURINE
  4. MERCAPTOPURINE [Suspect]
     Active Substance: MERCAPTOPURINE
     Route: 048
  5. METHOTREXATE [Suspect]
     Active Substance: METHOTREXATE
     Route: 048
  6. VINCRISTINE [Suspect]
     Active Substance: VINCRISTINE
     Route: 042
     Dates: start: 202012
  7. PREDNISONE [Suspect]
     Active Substance: PREDNISONE
  8. PREDNISONE [Suspect]
     Active Substance: PREDNISONE

REACTIONS (3)
  - Drug-induced liver injury [Recovered/Resolved]
  - COVID-19 [Unknown]
  - Cholestasis [Recovered/Resolved]

NARRATIVE: CASE EVENT DATE: 20201201
